FAERS Safety Report 4704604-8 (Version None)
Quarter: 2005Q2

REPORT INFORMATION
  Report Type: 
  Country: None (occurrence: None)
  Receive Date: 20050629
  Receipt Date: 20050616
  Transmission Date: 20051028
  Serious: Yes (Hospitalization)
  Sender: FDA-Public Use
  Company Number: SUSI-2005-00497

PATIENT
  Age: 31 Year
  Sex: Male

DRUGS (3)
  1. PENTASA [Suspect]
     Indication: COLITIS ULCERATIVE
     Dosage: 750 MG, 3X/DAY:TID, ORAL; 500 MG, 3X/DAY:TID, ORAL
     Route: 048
     Dates: start: 20050301, end: 20050530
  2. PENTASA [Suspect]
     Indication: COLITIS ULCERATIVE
     Dosage: 750 MG, 3X/DAY:TID, ORAL; 500 MG, 3X/DAY:TID, ORAL
     Route: 048
     Dates: start: 20050531, end: 20050601
  3. POLYCARBOPHIL (POLYCARBOPHIL) [Concomitant]

REACTIONS (2)
  - PERICARDITIS [None]
  - PLEURISY [None]
